FAERS Safety Report 13638439 (Version 2)
Quarter: 2017Q3

REPORT INFORMATION
  Report Type: Spontaneous
  Country: IT (occurrence: IT)
  Receive Date: 20170609
  Receipt Date: 20170809
  Transmission Date: 20171127
  Serious: Yes (Other)
  Sender: FDA-Public Use
  Company Number: IT-SA-2017SA103045

PATIENT
  Age: 48 Year
  Sex: Male

DRUGS (2)
  1. OXALIPLATIN. [Suspect]
     Active Substance: OXALIPLATIN
     Indication: BENIGN GASTRIC NEOPLASM
     Route: 042
     Dates: start: 20170213, end: 20170502
  2. CAPECITABINE. [Suspect]
     Active Substance: CAPECITABINE
     Route: 042
     Dates: start: 20170213, end: 20170502

REACTIONS (1)
  - Hyperlipasaemia [Recovering/Resolving]

NARRATIVE: CASE EVENT DATE: 20170510
